FAERS Safety Report 6611603-8 (Version None)
Quarter: 2010Q1

REPORT INFORMATION
  Report Type: 
  Country: None (occurrence: None)
  Receive Date: 20100303
  Receipt Date: 20100220
  Transmission Date: 20100710
  Serious: Yes (Death, Other)
  Sender: FDA-Public Use
  Company Number: US-BAYER-201016829GPV

PATIENT
  Age: 26 Year
  Sex: Female

DRUGS (5)
  1. ALEMTUZUMAB [Suspect]
     Indication: IMMUNOSUPPRESSION
  2. VORICONAZOLE [Concomitant]
     Indication: ANTIFUNGAL PROPHYLAXIS
     Dosage: PRETRANSPLANT
     Route: 048
  3. VORICONAZOLE [Concomitant]
     Dosage: POSTTRANSPLANT
     Route: 048
  4. TERBINAFINE HCL [Concomitant]
     Indication: ANTIFUNGAL PROPHYLAXIS
     Dosage: POSTTRANSPLANT
  5. TERBINAFINE HCL [Concomitant]
     Dosage: PRETRANSPLANT

REACTIONS (4)
  - BRAIN ABSCESS [None]
  - MEDIASTINITIS [None]
  - SCEDOSPORIUM INFECTION [None]
  - VASCULAR PSEUDOANEURYSM [None]
